FAERS Safety Report 8895439 (Version 1)
Quarter: 2012Q4

REPORT INFORMATION
  Report Type: 
  Country: US (occurrence: US)
  Receive Date: 20121107
  Receipt Date: 20121107
  Transmission Date: 20130627
  Serious: Yes (Other)
  Sender: FDA-Public Use
  Company Number: CHPA2012US022750

PATIENT
  Age: 83 Year
  Sex: Female

DRUGS (2)
  1. TRIAMINIC DAY TIME COLD AND COUGH [Suspect]
     Indication: NASAL CONGESTION
     Dosage: Unk, as needed
     Route: 048
     Dates: start: 2008
  2. CRESTOR [Concomitant]
     Indication: ARTERIAL DISORDER
     Dosage: 40 mg, daily

REACTIONS (2)
  - Stent malfunction [Unknown]
  - Lip discolouration [Recovered/Resolved]
